FAERS Safety Report 7141628-8 (Version None)
Quarter: 2010Q4

REPORT INFORMATION
  Report Type: 
  Country: None (occurrence: None)
  Receive Date: 20101207
  Receipt Date: 20101126
  Transmission Date: 20110411
  Serious: Yes (Other)
  Sender: FDA-Public Use
  Company Number: PHHY2009CA19062

PATIENT
  Sex: Male

DRUGS (2)
  1. SANDOSTATIN LAR [Suspect]
     Indication: METASTATIC CARCINOID TUMOUR
     Dosage: 30 MG
     Route: 030
     Dates: start: 20090413
  2. SANDOSTATIN LAR [Suspect]
     Dosage: 30 MG EVERY 4 WEEKS
     Route: 030

REACTIONS (9)
  - AGGRESSION [None]
  - BLOOD PRESSURE INCREASED [None]
  - DIARRHOEA [None]
  - EATING DISORDER [None]
  - HEART RATE IRREGULAR [None]
  - INJECTION SITE PAIN [None]
  - PHARYNGITIS [None]
  - VOMITING [None]
  - WEIGHT DECREASED [None]
